FAERS Safety Report 14740597 (Version 1)
Quarter: 2018Q2

REPORT INFORMATION
  Report Type: Spontaneous
  Country: BR (occurrence: BR)
  Receive Date: 20180410
  Receipt Date: 20180410
  Transmission Date: 20180711
  Serious: Yes (Hospitalization)
  Sender: FDA-Public Use
  Company Number: BR-LPDUSPRD-20180513

PATIENT
  Age: 78 Year
  Sex: Female

DRUGS (1)
  1. FERINJECT [Suspect]
     Active Substance: FERRIC CARBOXYMALTOSE
     Dosage: 1 AMPOULE
     Route: 042
     Dates: start: 20170620

REACTIONS (2)
  - Asthenia [Unknown]
  - Fall [Unknown]
